FAERS Safety Report 25497927 (Version 1)
Quarter: 2025Q3

REPORT INFORMATION
  Report Type: Report from Study
  Country: JP (occurrence: JP)
  Receive Date: 20250701
  Receipt Date: 20250701
  Transmission Date: 20251020
  Serious: Yes (Other)
  Sender: ROCHE
  Company Number: JP-ROCHE-10000325060

PATIENT
  Age: 50 Year
  Sex: Female

DRUGS (17)
  1. KADCYLA [Interacting]
     Active Substance: ADO-TRASTUZUMAB EMTANSINE
     Indication: HER2 positive breast cancer
     Route: 042
  2. KADCYLA [Interacting]
     Active Substance: ADO-TRASTUZUMAB EMTANSINE
     Route: 042
  3. KADCYLA [Interacting]
     Active Substance: ADO-TRASTUZUMAB EMTANSINE
     Route: 042
  4. PROGRAF [Interacting]
     Active Substance: TACROLIMUS
     Indication: Breast cancer
     Route: 048
  5. PROGRAF [Interacting]
     Active Substance: TACROLIMUS
     Route: 048
  6. DOCETAXEL [Concomitant]
     Active Substance: DOCETAXEL
  7. HERCEPTIN [Concomitant]
     Active Substance: TRASTUZUMAB
     Route: 042
  8. EPIRUBICIN [Concomitant]
     Active Substance: EPIRUBICIN
  9. CYCLOPHOSPHAMIDE [Concomitant]
     Active Substance: CYCLOPHOSPHAMIDE
  10. AMLODIPINE [Concomitant]
     Active Substance: AMLODIPINE BESYLATE
  11. BUDESONIDE [Concomitant]
     Active Substance: BUDESONIDE
  12. FLUCONAZOLE [Concomitant]
     Active Substance: FLUCONAZOLE
  13. IBANDRONIC ACID [Concomitant]
     Active Substance: IBANDRONIC ACID
  14. LEVOTHYROXINE [Concomitant]
     Active Substance: LEVOTHYROXINE
  15. MESALAMINE [Concomitant]
     Active Substance: MESALAMINE
  16. SULFAMETHOXAZOLE\TRIMETHOPRIM [Concomitant]
     Active Substance: SULFAMETHOXAZOLE\TRIMETHOPRIM
  17. URSODIOL [Concomitant]
     Active Substance: URSODIOL

REACTIONS (3)
  - Drug interaction [Unknown]
  - Aspartate aminotransferase increased [Unknown]
  - Alanine aminotransferase increased [Unknown]
